FAERS Safety Report 11084538 (Version 2)
Quarter: 2015Q2

REPORT INFORMATION
  Report Type: Spontaneous
  Country: US (occurrence: US)
  Receive Date: 20150503
  Receipt Date: 20150525
  Transmission Date: 20150821
  Serious: No
  Sender: FDA-Public Use
  Company Number: US-JNJFOC-20150309786

PATIENT
  Sex: Male

DRUGS (1)
  1. XARELTO [Suspect]
     Active Substance: RIVAROXABAN
     Indication: PRODUCT USED FOR UNKNOWN INDICATION
     Route: 048
     Dates: start: 20141203

REACTIONS (4)
  - Blood folate decreased [Unknown]
  - Vitamin B12 decreased [Unknown]
  - Vitamin B6 decreased [Unknown]
  - Blood homocysteine increased [Unknown]

NARRATIVE: CASE EVENT DATE: 20150107
